FAERS Safety Report 19223782 (Version 3)
Quarter: 2021Q3

REPORT INFORMATION
  Report Type: Spontaneous
  Country: US (occurrence: US)
  Receive Date: 20210506
  Receipt Date: 20210707
  Transmission Date: 20211014
  Serious: Yes (Other)
  Sender: FDA-Public Use
  Company Number: US-PFIZER INC-2017268415

PATIENT
  Age: 65 Year
  Sex: Male
  Weight: 93.88 kg

DRUGS (3)
  1. BENEFIX [Suspect]
     Active Substance: COAGULATION FACTOR IX RECOMBINANT HUMAN\ISOPROPYL ALCOHOL
     Indication: FACTOR IX DEFICIENCY
     Dosage: 9100 UNITS (+/?10%) = 100 U/KG ONCE DAILY
  2. BENEFIX [Suspect]
     Active Substance: COAGULATION FACTOR IX RECOMBINANT HUMAN\ISOPROPYL ALCOHOL
     Dosage: 4550 UNITS (+/? 10%)=50 UNITS/KG DAILY FOR EIGHT (8) DAYS AFTER DENTAL EXTRACTION.^)
  3. BENEFIX [Suspect]
     Active Substance: COAGULATION FACTOR IX RECOMBINANT HUMAN\ISOPROPYL ALCOHOL
     Dosage: 9400 UNITS ACTUAL (+/?10%) = 100U/KG = 3000U/VIAL NOMINAL X 3 VIALS + 500 U/VIAL NOMINAL =9500 UNITS

REACTIONS (2)
  - Muscle haemorrhage [Unknown]
  - Haemorrhage [Unknown]
